FAERS Safety Report 5533612-2 (Version None)
Quarter: 2007Q4

REPORT INFORMATION
  Report Type: 
  Country: None (occurrence: None)
  Receive Date: 20071120
  Receipt Date: 20070907
  Transmission Date: 20080405
  Serious: No
  Sender: FDA-Public Use
  Company Number: WAES 0709USA01077

PATIENT
  Age: 80 Year
  Sex: Female

DRUGS (5)
  1. JANUVIA [Suspect]
     Indication: DIABETES MELLITUS
     Dosage: PO
     Route: 048
     Dates: start: 20070528
  2. AGGRENOX [Concomitant]
  3. BYETTA [Concomitant]
  4. COZAAR [Concomitant]
  5. TOPROL-XL [Concomitant]

REACTIONS (1)
  - BLOOD GLUCOSE INCREASED [None]
